FAERS Safety Report 5185868-6 (Version None)
Quarter: 2006Q4

REPORT INFORMATION
  Report Type: 
  Country: None (occurrence: None)
  Receive Date: 20061220
  Receipt Date: 20060925
  Transmission Date: 20070319
  Serious: No
  Sender: FDA-Public Use
  Company Number: US-GLAXOSMITHKLINE-A0621230A

PATIENT
  Age: 40 Year
  Sex: Female

DRUGS (5)
  1. EQUATE NTS 21MG [Suspect]
     Dates: start: 20060828
  2. KEPPRA [Concomitant]
  3. TRILEPTAL [Concomitant]
  4. MYSOLINE [Concomitant]
  5. TOPAMAX [Concomitant]

REACTIONS (3)
  - ABNORMAL DREAMS [None]
  - HEADACHE [None]
  - MIGRAINE [None]
